FAERS Safety Report 11603761 (Version 1)
Quarter: 2015Q4

REPORT INFORMATION
  Report Type: Spontaneous
  Country: GB (occurrence: GB)
  Receive Date: 20151007
  Receipt Date: 20151007
  Transmission Date: 20160304
  Serious: Yes (Other)
  Sender: FDA-Public Use
  Company Number: GB-TEVA-597191ACC

PATIENT
  Age: 85 Year
  Sex: Male
  Weight: 78.2 kg

DRUGS (3)
  1. WARFARIN [Suspect]
     Active Substance: WARFARIN
  2. ORIGINAL EXTRA STRONG ALL NATURAL FISHERMANS FRIEND MENTHOL COUGH SUPPRESSANT [Interacting]
     Active Substance: MENTHOL
     Indication: OROPHARYNGEAL PAIN
     Dosage: AS PER PACKET.
     Route: 002
     Dates: start: 20150903, end: 20150910
  3. VENO^S [Concomitant]
     Indication: OROPHARYNGEAL PAIN

REACTIONS (2)
  - Drug interaction [Unknown]
  - International normalised ratio increased [Recovered/Resolved]

NARRATIVE: CASE EVENT DATE: 20150911
